FAERS Safety Report 12187957 (Version 3)
Quarter: 2016Q1

REPORT INFORMATION
  Report Type: Report from Study
  Country: CN (occurrence: CN)
  Receive Date: 20160317
  Receipt Date: 20160330
  Transmission Date: 20160526
  Serious: Yes (Hospitalization)
  Sender: FDA-Public Use
  Company Number: PHHO2016CN003773

PATIENT
  Age: 75 Year
  Sex: Male
  Weight: 66.5 kg

DRUGS (12)
  1. DIOVAN [Suspect]
     Active Substance: VALSARTAN
     Indication: CARDIAC FAILURE CHRONIC
     Dosage: 160 MG, BID
     Route: 048
     Dates: start: 20150804, end: 20160216
  2. METOPROLOL TARTRATE. [Concomitant]
     Active Substance: METOPROLOL TARTRATE
     Indication: ATRIAL FIBRILLATION
     Dosage: 47.5 MG, QD
     Route: 048
     Dates: start: 201503, end: 20160213
  3. SPIRONOLACTONE. [Concomitant]
     Active Substance: SPIRONOLACTONE
     Indication: DYSURIA
     Dosage: 20 MG, QD
     Route: 048
     Dates: start: 201503, end: 20160213
  4. ATORVASTATIN CALCIUM. [Concomitant]
     Active Substance: ATORVASTATIN CALCIUM
     Indication: HYPERLIPIDAEMIA
     Dosage: 20 MG, QD
     Route: 048
     Dates: start: 201503, end: 20160213
  5. SPIRONOLACTONE. [Concomitant]
     Active Substance: SPIRONOLACTONE
     Dosage: 20 MG, BID
     Route: 048
     Dates: start: 20160224
  6. CLOPIDOGREL [Concomitant]
     Active Substance: CLOPIDOGREL BISULFATE
     Indication: ANTICOAGULANT THERAPY
     Dosage: 75 MG, QD
     Route: 048
     Dates: start: 20160224
  7. ALPRAZOLAM. [Concomitant]
     Active Substance: ALPRAZOLAM
     Indication: ANXIETY
     Dosage: 0.4 MG, QN
     Route: 048
     Dates: start: 201503, end: 20160213
  8. WARFARIN [Concomitant]
     Active Substance: WARFARIN
     Indication: COAGULATION TIME
     Dosage: 3.125 MG, QD
     Route: 048
     Dates: start: 20150912, end: 20160223
  9. DIGOXIN. [Concomitant]
     Active Substance: DIGOXIN
     Indication: PROPHYLAXIS
     Dosage: 12.5 MG, BID
     Route: 048
     Dates: start: 20160224
  10. FUROSEMIDE. [Concomitant]
     Active Substance: FUROSEMIDE
     Indication: DYSURIA
     Dosage: 20 MG, QD
     Route: 048
     Dates: start: 201503, end: 20160213
  11. HYDROCHLOROTHIAZIDE. [Concomitant]
     Active Substance: HYDROCHLOROTHIAZIDE
     Indication: DYSURIA
     Dosage: 12.5 MG, BID
     Route: 048
     Dates: start: 20160224
  12. METOPROLOL TARTRATE. [Concomitant]
     Active Substance: METOPROLOL TARTRATE
     Dosage: 12.5 MG, BID
     Route: 048
     Dates: start: 20160224

REACTIONS (2)
  - Chronic obstructive pulmonary disease [Recovering/Resolving]
  - Pulmonary hypertension [Not Recovered/Not Resolved]

NARRATIVE: CASE EVENT DATE: 20160214
